FAERS Safety Report 5415082-8 (Version None)
Quarter: 2007Q3

REPORT INFORMATION
  Report Type: 
  Country: None (occurrence: None)
  Receive Date: 20070815
  Receipt Date: 20070521
  Transmission Date: 20080115
  Serious: No
  Sender: FDA-Public Use
  Company Number: A0652484A

PATIENT
  Age: 47 Year
  Sex: Female

DRUGS (6)
  1. COREG CR [Suspect]
     Indication: DRUG USE FOR UNKNOWN INDICATION
     Dosage: 20MG PER DAY
     Route: 048
  2. COREG [Suspect]
     Indication: DRUG USE FOR UNKNOWN INDICATION
     Route: 048
  3. PLAVIX [Concomitant]
  4. AMOXICILLIN [Concomitant]
  5. PROTONIX [Concomitant]
  6. ASPIRIN [Concomitant]

REACTIONS (2)
  - DIZZINESS [None]
  - INSOMNIA [None]
